FAERS Safety Report 7514788-4 (Version None)
Quarter: 2011Q2

REPORT INFORMATION
  Report Type: 
  Country: None (occurrence: None)
  Receive Date: 20110520
  Receipt Date: 20110511
  Transmission Date: 20111010
  Serious: Yes (Hospitalization, Other)
  Sender: FDA-Public Use
  Company Number: ACO_24186_2011

PATIENT
  Age: 56 Year
  Sex: Female
  Weight: 56.7 kg

DRUGS (11)
  1. GABAPENTIN [Concomitant]
  2. OXYBUTYNIN [Concomitant]
  3. ALENDRONATE SODIUM [Concomitant]
  4. CALCIUM (CALCIUM) [Concomitant]
  5. BETASERON [Concomitant]
  6. BACLOFEN [Concomitant]
  7. AMPYRA [Suspect]
     Indication: GAIT DISTURBANCE
     Dosage: 10 MG, BID, ORAL
     Route: 048
     Dates: start: 20110301, end: 20110301
  8. MULTIVITAMIN /00097801/(ASORBIC, CALCIUM PANTOTHENATE, ERGOCALCIFEROL, [Concomitant]
  9. LEVETIRACETAM [Concomitant]
  10. SERTRALINE HYDROCHLORIDE [Concomitant]
  11. LISINOPRIL [Concomitant]

REACTIONS (1)
  - CONVULSION [None]
